FAERS Safety Report 5427496-0 (Version None)
Quarter: 2007Q3

REPORT INFORMATION
  Report Type: 
  Country: None (occurrence: None)
  Receive Date: 20070824
  Receipt Date: 20070824
  Transmission Date: 20080115
  Serious: Yes (Hospitalization)
  Sender: FDA-Public Use
  Company Number: None

PATIENT
  Age: 83 Year
  Sex: Female
  Weight: 65 kg

DRUGS (1)
  1. ERBITUX [Suspect]
     Indication: NEOPLASM MALIGNANT
     Dosage: 676MG IV
     Route: 042
     Dates: start: 20070813, end: 20070813

REACTIONS (4)
  - DYSPHONIA [None]
  - EYE SWELLING [None]
  - FACE OEDEMA [None]
  - OBSTRUCTIVE AIRWAYS DISORDER [None]
